FAERS Safety Report 8216715-3 (Version None)
Quarter: 2012Q1

REPORT INFORMATION
  Report Type: 
  Country: None (occurrence: None)
  Receive Date: 20120316
  Receipt Date: 20120305
  Transmission Date: 20120608
  Serious: Yes (Other)
  Sender: FDA-Public Use
  Company Number: DE-FRI-1000029103

PATIENT
  Sex: Male
  Weight: 85 kg

DRUGS (11)
  1. DEXAEDO [Concomitant]
     Indication: EYE DISORDER
     Route: 047
  2. MEMANTINE [Suspect]
     Dosage: 10 MG
     Route: 048
     Dates: start: 20120122, end: 20120128
  3. MEMANTINE [Suspect]
     Dosage: 20 MG
     Route: 048
     Dates: start: 20120205
  4. ATEHEXAL [Concomitant]
     Indication: HYPERTENSION
     Dosage: 50 MG
     Dates: start: 19800101
  5. CORNEREGEL [Concomitant]
     Indication: EYE DISORDER
     Route: 047
  6. HYLOCOMOD AUGEN [Concomitant]
     Indication: EYE DISORDER
     Route: 047
  7. MEMANTINE [Suspect]
     Dosage: 15 MG
     Route: 048
     Dates: start: 20120129, end: 20120204
  8. OXYTETRACYCLIN-PREDNISOLON AUGENSALBE [Concomitant]
     Indication: EYE DISORDER
     Route: 047
     Dates: start: 20120101
  9. FLOXAL [Concomitant]
     Indication: EYE DISORDER
     Route: 047
  10. MEMANTINE [Suspect]
     Indication: DEMENTIA
     Dosage: 5 MG
     Route: 048
     Dates: start: 20120115, end: 20120221
  11. VOLTAREN [Concomitant]
     Indication: EYE DISORDER
     Route: 047

REACTIONS (2)
  - DRUG INEFFECTIVE [None]
  - DERMATITIS ACNEIFORM [None]
